FAERS Safety Report 8484130-3 (Version None)
Quarter: 2012Q3

REPORT INFORMATION
  Report Type: 
  Country: None (occurrence: None)
  Receive Date: 20120703
  Receipt Date: 20120625
  Transmission Date: 20120928
  Serious: Yes (Hospitalization)
  Sender: FDA-Public Use
  Company Number: US-BAYER-2011-094721

PATIENT
  Age: 31 Year
  Sex: Female

DRUGS (4)
  1. YASMIN [Suspect]
     Dosage: UNK
  2. CEFADROXIL [Concomitant]
     Dosage: 500 MG, UNK
     Dates: start: 20060617
  3. MEPERIDINE/PROMETHAZINE [Concomitant]
     Dosage: UNK
     Dates: start: 20060617
  4. YAZ [Suspect]
     Dosage: UNK

REACTIONS (3)
  - DEEP VEIN THROMBOSIS [None]
  - INJURY [None]
  - PAIN [None]
